FAERS Safety Report 16859687 (Version 1)
Quarter: 2019Q3

REPORT INFORMATION
  Report Type: Spontaneous
  Country: ZA (occurrence: ZA)
  Receive Date: 20190927
  Receipt Date: 20190927
  Transmission Date: 20191005
  Serious: Yes (Hospitalization, Other)
  Sender: FDA-Public Use
  Company Number: ZA-CIPLA LTD.-2019ZA06487

PATIENT

DRUGS (2)
  1. LAMIVUDINE. [Suspect]
     Active Substance: LAMIVUDINE
     Dosage: 60 DOSAGE FORM
     Route: 048
  2. STAVUDINE. [Suspect]
     Active Substance: STAVUDINE
     Dosage: 60 DOSAGE FORM
     Route: 048

REACTIONS (5)
  - Nausea [Unknown]
  - Intentional self-injury [Unknown]
  - Intentional overdose [Unknown]
  - Suicide attempt [Unknown]
  - Abdominal pain [Unknown]
